FAERS Safety Report 7419063-4 (Version None)
Quarter: 2011Q2

REPORT INFORMATION
  Report Type: 
  Country: None (occurrence: None)
  Receive Date: 20110415
  Receipt Date: 20110406
  Transmission Date: 20111010
  Serious: Yes (Death, Hospitalization)
  Sender: FDA-Public Use
  Company Number: PHBS2003JP06340

PATIENT
  Sex: Male

DRUGS (6)
  1. MUCOSTA [Concomitant]
     Indication: PROPHYLAXIS AGAINST GASTROINTESTINAL ULCER
     Dosage: 200 MG, UNK
     Route: 048
     Dates: start: 20021224, end: 20091101
  2. MYSLEE [Concomitant]
     Dosage: 5 MG, UNK
     Dates: start: 20030701, end: 20091101
  3. GLEEVEC [Suspect]
     Indication: CHRONIC MYELOID LEUKAEMIA
     Dosage: 400 MG, QD
     Route: 048
     Dates: start: 20020813, end: 20030610
  4. THEO-DUR [Concomitant]
     Dosage: 200 MG,
     Route: 048
     Dates: start: 20030701, end: 20091101
  5. MUCOSOLVAN [Concomitant]
     Dosage: 45 MG, UNK
     Route: 048
     Dates: start: 20030701, end: 20091101
  6. MUCODYNE [Concomitant]
     Dosage: 750 MG, UNK
     Route: 048
     Dates: start: 20030701, end: 20091101

REACTIONS (11)
  - GASTRIC CANCER [None]
  - DYSPNOEA [None]
  - NEOPLASM MALIGNANT [None]
  - DECREASED APPETITE [None]
  - ABDOMINAL PAIN [None]
  - RASH [None]
  - EPIGASTRIC DISCOMFORT [None]
  - METASTASES TO LIVER [None]
  - COUGH [None]
  - PULMONARY FIBROSIS [None]
  - MALIGNANT ASCITES [None]
